FAERS Safety Report 22596293 (Version 1)
Quarter: 2023Q2

REPORT INFORMATION
  Report Type: Spontaneous
  Country: US (occurrence: None)
  Receive Date: 20230613
  Receipt Date: 20230613
  Transmission Date: 20230721
  Serious: Yes (Other)
  Sender: FDA-Public Use
  Company Number: 2023A130924

PATIENT
  Age: 25216 Day

DRUGS (1)
  1. SAPHNELO [Suspect]
     Active Substance: ANIFROLUMAB-FNIA
     Dosage: 5TH INFUSION
     Route: 042

REACTIONS (23)
  - Blood pressure increased [Unknown]
  - Feeling abnormal [Unknown]
  - Chest discomfort [Unknown]
  - Confusional state [Unknown]
  - Tremor [Unknown]
  - Abdominal distension [Unknown]
  - Anxiety [Unknown]
  - Oropharyngeal pain [Unknown]
  - Dizziness [Unknown]
  - Decreased appetite [Unknown]
  - Thinking abnormal [Unknown]
  - Fatigue [Unknown]
  - Hand deformity [Unknown]
  - Balance disorder [Unknown]
  - Dyspnoea [Unknown]
  - Arthralgia [Unknown]
  - Dry eye [Unknown]
  - Micturition disorder [Unknown]
  - Cough [Unknown]
  - Abdominal pain [Unknown]
  - Taste disorder [Unknown]
  - Oral disorder [Unknown]
  - Asthenia [Unknown]

NARRATIVE: CASE EVENT DATE: 20220605
